FAERS Safety Report 7955282-6 (Version None)
Quarter: 2011Q4

REPORT INFORMATION
  Report Type: 
  Country: None (occurrence: None)
  Receive Date: 20111202
  Receipt Date: 20110314
  Transmission Date: 20120403
  Serious: Yes (Hospitalization, Other)
  Sender: FDA-Public Use
  Company Number: US-BAYER-200916758BCC

PATIENT
  Age: 65 Year
  Sex: Male

DRUGS (6)
  1. FUROSEMIDE [Concomitant]
     Indication: FLUID RETENTION
  2. CETUXIMAB [Suspect]
     Indication: COLORECTAL CANCER METASTATIC
     Dosage: 279 MG, OW
     Route: 042
     Dates: start: 20090429, end: 20091020
  3. ASPIRIN [Suspect]
     Indication: PRODUCT USED FOR UNKNOWN INDICATION
     Dosage: 81 MG, UNK
     Route: 065
  4. ACETAMINOPHEN [Concomitant]
     Dosage: UNK
     Dates: start: 20091101
  5. BRIVANIB ALANINATE OR PLACEBO [Suspect]
     Indication: COLORECTAL CANCER METASTATIC
     Dosage: DAILY DOSE 600 MG
     Route: 048
     Dates: start: 20090429, end: 20091022
  6. PREDNISONE TAB [Concomitant]
     Route: 065

REACTIONS (15)
  - DECREASED APPETITE [None]
  - GENERALISED OEDEMA [None]
  - CHOLECYSTITIS [None]
  - PAIN [None]
  - HYPOTENSION [None]
  - URINARY TRACT INFECTION [None]
  - CHOLANGITIS [None]
  - OESOPHAGEAL ULCER [None]
  - SYNCOPE [None]
  - BODY TEMPERATURE INCREASED [None]
  - HEPATIC FAILURE [None]
  - LOWER GASTROINTESTINAL HAEMORRHAGE [None]
  - MELAENA [None]
  - HEPATIC FUNCTION ABNORMAL [None]
  - UNEVALUABLE EVENT [None]
